FAERS Safety Report 22221666 (Version 15)
Quarter: 2024Q1

REPORT INFORMATION
  Report Type: Spontaneous
  Country: CA (occurrence: CA)
  Receive Date: 20230418
  Receipt Date: 20240318
  Transmission Date: 20240410
  Serious: Yes (Other)
  Sender: FDA-Public Use
  Company Number: CA-CELLTRION INC.-2022CA019281

PATIENT

DRUGS (23)
  1. INFLECTRA [Suspect]
     Active Substance: INFLIXIMAB-DYYB
     Indication: Crohn^s disease
     Dosage: 5 MG/KG, 0, 2, 6 WEEKS, THEN EVERY 8 WEEKS
     Route: 041
     Dates: start: 20190807, end: 20201020
  2. INFLECTRA [Suspect]
     Active Substance: INFLIXIMAB-DYYB
     Dosage: 5 MG/KG, EVERY 6 WEEK
     Route: 041
     Dates: start: 20201202, end: 20220819
  3. INFLECTRA [Suspect]
     Active Substance: INFLIXIMAB-DYYB
     Dosage: 10 MG/KG, EVERY 6 WEEK
     Route: 042
     Dates: start: 20221019
  4. INFLECTRA [Suspect]
     Active Substance: INFLIXIMAB-DYYB
     Dosage: 10 MG/KG, EVERY 6 WEEK
     Route: 042
     Dates: start: 20230120
  5. INFLECTRA [Suspect]
     Active Substance: INFLIXIMAB-DYYB
     Dosage: 10 MG/KG, EVERY 6 WEEK
     Route: 042
     Dates: start: 20230303
  6. INFLECTRA [Suspect]
     Active Substance: INFLIXIMAB-DYYB
     Dosage: 760 MG (10 MG/KG), EVERY 6 WEEKS
     Route: 042
     Dates: start: 20230421
  7. INFLECTRA [Suspect]
     Active Substance: INFLIXIMAB-DYYB
     Dosage: 770 MG, AFTER 5 WEEKS
     Route: 042
     Dates: start: 20230526
  8. INFLECTRA [Suspect]
     Active Substance: INFLIXIMAB-DYYB
     Dosage: 770 MG, AFTER 5 WEEKS
     Route: 042
     Dates: start: 20230526
  9. INFLECTRA [Suspect]
     Active Substance: INFLIXIMAB-DYYB
     Dosage: 780 MG, EVERY 6 WEEK
     Route: 042
     Dates: start: 20230707
  10. INFLECTRA [Suspect]
     Active Substance: INFLIXIMAB-DYYB
     Dosage: 800 MG (10 MG/KG) EVERY 6 WEEKS
     Route: 042
     Dates: start: 20230818
  11. INFLECTRA [Suspect]
     Active Substance: INFLIXIMAB-DYYB
     Dosage: 800 MG (10 MG/KG) EVERY 6 WEEKS
     Route: 042
     Dates: start: 20230818
  12. INFLECTRA [Suspect]
     Active Substance: INFLIXIMAB-DYYB
     Dosage: 790 MG, EVERY 6 WEEKS
     Route: 042
     Dates: start: 20230922
  13. INFLECTRA [Suspect]
     Active Substance: INFLIXIMAB-DYYB
     Dosage: 770 MG, EVERY 6 WEEKS
     Route: 042
     Dates: start: 20231103
  14. INFLECTRA [Suspect]
     Active Substance: INFLIXIMAB-DYYB
     Dosage: 780 MG, EVERY 6 WEEKS
     Route: 042
     Dates: start: 20231219
  15. INFLECTRA [Suspect]
     Active Substance: INFLIXIMAB-DYYB
     Dosage: 780 MG (10 MG/KG), AFTER 5 WEEKS AND 3 DAYS, PRESCRIBED EVERY 6 WEEKS
     Route: 042
     Dates: start: 20240126
  16. INFLECTRA [Suspect]
     Active Substance: INFLIXIMAB-DYYB
     Dosage: 790 MG (10 MG/KG), EVERY 6 WEEKS
     Route: 042
     Dates: start: 20240308
  17. CHOLESTYRAMINE [Concomitant]
     Active Substance: CHOLESTYRAMINE
     Dosage: 1 DF 1/2 PACK DAILY AS NEEDED
     Route: 065
  18. FOLIC ACID [Concomitant]
     Active Substance: FOLIC ACID
     Dosage: 5 MG, 6 TIMES PER WEEK
     Route: 065
     Dates: start: 201907
  19. METHOTREXATE [Concomitant]
     Active Substance: METHOTREXATE
     Dosage: 2500 UG, WEEKLY
     Route: 065
     Dates: start: 201801
  20. OXYCODONE [Concomitant]
     Active Substance: OXYCODONE\OXYCODONE HYDROCHLORIDE
     Indication: Pain
     Dosage: 1 DF, AS NEEDED, 1 TO 2 TABLETS
     Route: 065
  21. SYMBICORT [Concomitant]
     Active Substance: BUDESONIDE\FORMOTEROL FUMARATE DIHYDRATE
     Dosage: 1DF, DOSAGE NOT AVAILABLE
     Route: 065
     Dates: start: 202005
  22. VENTOLIN [Concomitant]
     Active Substance: ALBUTEROL SULFATE
     Dosage: 1DF, DOSAGE NOT AVAILABLE
     Route: 065
     Dates: start: 202005
  23. VITAMIN B12 [Concomitant]
     Active Substance: CYANOCOBALAMIN
     Dosage: 1 DF
     Route: 065

REACTIONS (14)
  - Dental care [Unknown]
  - Procedural pain [Not Recovered/Not Resolved]
  - Therapeutic response shortened [Unknown]
  - Condition aggravated [Not Recovered/Not Resolved]
  - Drug level above therapeutic [Unknown]
  - Productive cough [Recovered/Resolved]
  - Anorectal discomfort [Not Recovered/Not Resolved]
  - Pharyngitis [Not Recovered/Not Resolved]
  - Arthralgia [Not Recovered/Not Resolved]
  - COVID-19 [Recovered/Resolved]
  - Sinusitis [Unknown]
  - Nasopharyngitis [Recovered/Resolved]
  - Headache [Recovered/Resolved]
  - Off label use [Unknown]

NARRATIVE: CASE EVENT DATE: 20201202
